FAERS Safety Report 5749068-0 (Version None)
Quarter: 2008Q2

REPORT INFORMATION
  Report Type: 
  Country: None (occurrence: None)
  Receive Date: 20080527
  Receipt Date: 20080522
  Transmission Date: 20081010
  Serious: Yes (Hospitalization)
  Sender: FDA-Public Use
  Company Number: JP-BRISTOL-MYERS SQUIBB COMPANY-14203301

PATIENT
  Age: 74 Year
  Sex: Male

DRUGS (3)
  1. TAXOL [Suspect]
     Indication: PROSTATE CANCER
     Route: 041
     Dates: start: 20070223
  2. PARAPLATIN [Suspect]
     Indication: PROSTATE CANCER
     Route: 041
     Dates: start: 20070223
  3. ESTRACYT [Concomitant]
     Dosage: 0RAL, 30-OCT-2007-UNKNOWN.
     Route: 048
     Dates: start: 20070223

REACTIONS (1)
  - MYELODYSPLASTIC SYNDROME [None]
